FAERS Safety Report 11281198 (Version 2)
Quarter: 2015Q3

REPORT INFORMATION
  Report Type: Spontaneous
  Country: JP (occurrence: JP)
  Receive Date: 20150717
  Receipt Date: 20150729
  Transmission Date: 20151125
  Serious: Yes (Hospitalization)
  Sender: FDA-Public Use
  Company Number: JP-PFIZER INC-2015233168

PATIENT
  Age: 75 Year
  Sex: Male
  Weight: 60 kg

DRUGS (16)
  1. GRACEVIT [Concomitant]
     Active Substance: SITAFLOXACIN
     Dosage: 100 MG, 1X/DAY
     Route: 048
     Dates: start: 20150612, end: 20150617
  2. ANAEMETRO [Suspect]
     Active Substance: METRONIDAZOLE
     Dosage: 500 MG, 2X/DAY
     Route: 041
     Dates: start: 20150612, end: 20150612
  3. ALLOPURINOL. [Concomitant]
     Active Substance: ALLOPURINOL
     Dosage: 100 MG, 1X/DAY
     Route: 048
     Dates: start: 20150622
  4. LUPRAC [Concomitant]
     Active Substance: TORSEMIDE
     Dosage: 0.25 MG, 1X/DAY
     Route: 048
     Dates: start: 20150612, end: 20150624
  5. AVOLVE [Concomitant]
     Active Substance: DUTASTERIDE
     Dosage: 0.5 MG, 1X/DAY
     Route: 048
  6. ZANTAC 75 [Concomitant]
     Active Substance: RANITIDINE HYDROCHLORIDE
     Dosage: 75 MG, 3X/DAY
     Route: 048
  7. MUCODYNE [Concomitant]
     Active Substance: CARBOCYSTEINE
     Dosage: 500 MG, 3X/DAY
     Route: 048
  8. SPIRIVA [Concomitant]
     Active Substance: TIOTROPIUM BROMIDE MONOHYDRATE
     Dosage: UNK, AS NEEDED
     Dates: start: 20150609
  9. ALLOPURINOL. [Concomitant]
     Active Substance: ALLOPURINOL
     Dosage: 100 MG, 1X/DAY
     Route: 048
  10. THEO-DUR [Concomitant]
     Active Substance: THEOPHYLLINE ANHYDROUS
     Dosage: 100 MG, 2X/DAY
     Route: 048
  11. LUPRAC [Concomitant]
     Active Substance: TORSEMIDE
     Dosage: 0.5 MG, 1X/DAY
     Route: 048
     Dates: start: 20150603, end: 20150611
  12. FLUTIFORM [Concomitant]
     Active Substance: FLUTICASONE PROPIONATE\FORMOTEROL FUMARATE
     Dosage: UNK, AS NEEDED
     Dates: start: 20150609
  13. ANAEMETRO [Suspect]
     Active Substance: METRONIDAZOLE
     Dosage: 500 MG, 3X/DAY
     Route: 041
     Dates: start: 20150613, end: 20150621
  14. MAGMITT [Concomitant]
     Active Substance: MAGNESIUM OXIDE
     Dosage: 380 MG, 3X/DAY
     Route: 048
  15. URIEF [Concomitant]
     Active Substance: SILODOSIN
     Dosage: 4 MG, 2X/DAY
     Route: 048
  16. LYRICA [Concomitant]
     Active Substance: PREGABALIN
     Dosage: 300 MG, DAILY
     Route: 048
     Dates: end: 20150624

REACTIONS (3)
  - Ataxia [Recovering/Resolving]
  - Tremor [Recovering/Resolving]
  - Nystagmus [Recovering/Resolving]

NARRATIVE: CASE EVENT DATE: 20150621
